FAERS Safety Report 12807648 (Version 3)
Quarter: 2016Q4

REPORT INFORMATION
  Report Type: Report from Study
  Country: BR (occurrence: BR)
  Receive Date: 20161004
  Receipt Date: 20161116
  Transmission Date: 20170207
  Serious: Yes (Other)
  Sender: FDA-Public Use
  Company Number: PHHY2016BR080013

PATIENT
  Age: 46 Year
  Sex: Female
  Weight: 65 kg

DRUGS (2)
  1. GILENYA [Suspect]
     Active Substance: FINGOLIMOD HYDROCHLORIDE
     Dosage: 0.5 MG, QD
     Route: 048
  2. GILENYA [Suspect]
     Active Substance: FINGOLIMOD HYDROCHLORIDE
     Indication: MULTIPLE SCLEROSIS
     Dosage: 0.5 MG, QD
     Route: 048
     Dates: start: 201510

REACTIONS (10)
  - Memory impairment [Not Recovered/Not Resolved]
  - Concomitant disease aggravated [Not Recovered/Not Resolved]
  - Fatigue [Recovering/Resolving]
  - Headache [Recovering/Resolving]
  - Myalgia [Recovering/Resolving]
  - Balance disorder [Recovering/Resolving]
  - Hypoaesthesia [Not Recovered/Not Resolved]
  - Visual impairment [Not Recovered/Not Resolved]
  - Hypertension [Recovering/Resolving]
  - Vision blurred [Not Recovered/Not Resolved]

NARRATIVE: CASE EVENT DATE: 201605
